FAERS Safety Report 18123326 (Version 4)
Quarter: 2021Q1

REPORT INFORMATION
  Report Type: Report from Study
  Country: BR (occurrence: BR)
  Receive Date: 20200807
  Receipt Date: 20210318
  Transmission Date: 20210419
  Serious: Yes (Other)
  Sender: FDA-Public Use
  Company Number: NVSC2020BR216784

PATIENT
  Age: 69 Year
  Sex: Male
  Weight: 52 kg

DRUGS (9)
  1. LASIX [Concomitant]
     Active Substance: FUROSEMIDE
     Dosage: 1 DF (40 MG), QD (START DATE DID NOT REMEMBERED)
     Route: 048
  2. LASIX [Concomitant]
     Active Substance: FUROSEMIDE
     Dosage: 2 DF (40 MG), QD  (START DATE DID NOT REMEMBER STOPPED AFTER 15 DAYS)
     Route: 048
  3. LOSARTAN. [Concomitant]
     Active Substance: LOSARTAN
     Indication: CARDIAC FAILURE
     Dosage: 0.5 DF, QD (STARTED MANY YEARS AGO, DID NOT REMEMBERED)
     Route: 048
  4. LASIX [Concomitant]
     Active Substance: FUROSEMIDE
     Indication: SWELLING
     Dosage: 1 DF (40 MG), QD  (STARTED MANY YEARS AGO AND STOP DATE DID NOT REMEMBER)
     Route: 048
  5. ENTRESTO [Suspect]
     Active Substance: SACUBITRIL\VALSARTAN
     Indication: CARDIAC FAILURE
     Dosage: 1 DF, BID
     Route: 048
     Dates: start: 202004
  6. CARVEDILOL. [Concomitant]
     Active Substance: CARVEDILOL
     Indication: CARDIAC FAILURE
     Dosage: 1 DF, BID STARTED 2 MONTHS AGO APPROXIMATELY (MORNING AND NIGHT)
     Route: 048
  7. ENTRESTO [Suspect]
     Active Substance: SACUBITRIL\VALSARTAN
     Dosage: 1 DF (49/51 MG), BID (STOPPED 2 MONTHS AGO)
     Route: 048
     Dates: start: 20200726
  8. SIMVASTATIN. [Concomitant]
     Active Substance: SIMVASTATIN
     Indication: CARDIAC FAILURE
     Dosage: UNK, QD (AT NIGHT), (STARTED AND STOPPED AFTER 2 YEARS)
     Route: 048
  9. SERETIDE [Concomitant]
     Active Substance: FLUTICASONE PROPIONATE\SALMETEROL XINAFOATE
     Indication: DYSPNOEA
     Dosage: UNK
     Route: 065

REACTIONS (7)
  - Peripheral swelling [Not Recovered/Not Resolved]
  - Blood pressure decreased [Unknown]
  - Retching [Recovering/Resolving]
  - Weight decreased [Not Recovered/Not Resolved]
  - Product dose omission issue [Unknown]
  - Syncope [Recovered/Resolved]
  - Appetite disorder [Recovering/Resolving]

NARRATIVE: CASE EVENT DATE: 202011
